FAERS Safety Report 23350764 (Version 1)
Quarter: 2023Q4

REPORT INFORMATION
  Report Type: Spontaneous
  Country: US (occurrence: None)
  Receive Date: 20231228
  Receipt Date: 20231228
  Transmission Date: 20240109
  Serious: Yes (Disabling)
  Sender: FDA-Public Use
  Company Number: None

PATIENT
  Age: 65 Year
  Sex: Male
  Weight: 90 kg

DRUGS (1)
  1. LEVOFLOXACIN [Suspect]
     Active Substance: LEVOFLOXACIN
     Indication: Epididymitis
     Dosage: OTHER QUANTITY : 1 CAPSULE(S);?FREQUENCY : DAILY;?
     Route: 048
     Dates: end: 20180225

REACTIONS (7)
  - Fatigue [None]
  - Myalgia [None]
  - Neuralgia [None]
  - Muscle atrophy [None]
  - Mental impairment [None]
  - General physical health deterioration [None]
  - Drug monitoring procedure not performed [None]

NARRATIVE: CASE EVENT DATE: 20180218
